FAERS Safety Report 8290263-7 (Version None)
Quarter: 2012Q2

REPORT INFORMATION
  Report Type: 
  Country: None (occurrence: None)
  Receive Date: 20120417
  Receipt Date: 20120405
  Transmission Date: 20120825
  Serious: Yes (Other)
  Sender: FDA-Public Use
  Company Number: CA-JNJFOC-20120402422

PATIENT
  Sex: Female
  Weight: 78.02 kg

DRUGS (4)
  1. REMICADE [Suspect]
     Route: 042
     Dates: start: 20120405, end: 20120405
  2. VENLAFAXINE [Concomitant]
     Route: 065
  3. REMICADE [Suspect]
     Indication: COLITIS ULCERATIVE
     Route: 042
     Dates: start: 20111030
  4. SYNTHROID [Concomitant]
     Route: 065

REACTIONS (5)
  - INFUSION RELATED REACTION [None]
  - LIP SWELLING [None]
  - ADVERSE DRUG REACTION [None]
  - HYPERTENSION [None]
  - HYPOAESTHESIA [None]
